FAERS Safety Report 7056602-X (Version None)
Quarter: 2010Q4

REPORT INFORMATION
  Report Type: 
  Country: None (occurrence: None)
  Receive Date: 20101021
  Receipt Date: 20101012
  Transmission Date: 20110411
  Serious: Yes (Other)
  Sender: FDA-Public Use
  Company Number: US-ALLERGAN-1013136US

PATIENT
  Age: 69 Year
  Sex: Male

DRUGS (4)
  1. RESTASIS [Suspect]
     Indication: DRY EYE
     Dosage: 1 GTT, BID
     Dates: start: 20100401, end: 20100801
  2. RESTASIS [Suspect]
     Dosage: 1 GTT, QID
  3. RESTASIS [Suspect]
     Dosage: 1 GTT, BID
     Dates: start: 20060101
  4. TEARS [Concomitant]
     Indication: DRY EYE

REACTIONS (2)
  - EYELID PTOSIS [None]
  - MANTLE CELL LYMPHOMA RECURRENT [None]
